FAERS Safety Report 7773855-0 (Version None)
Quarter: 2011Q3

REPORT INFORMATION
  Report Type: 
  Country: None (occurrence: None)
  Receive Date: 20110923
  Receipt Date: 20110916
  Transmission Date: 20111222
  Serious: Yes (Other)
  Sender: FDA-Public Use
  Company Number: JP-B.I. PHARMACEUTICALS,INC./RIDGEFIELD-2011-BP-22310NB

PATIENT
  Age: 83 Year
  Sex: Male

DRUGS (5)
  1. PRADAXA [Suspect]
     Indication: ATRIAL FIBRILLATION
     Dosage: 220 MG
     Route: 048
  2. FLUNITRAZEPAM [Concomitant]
     Dosage: 2 MG
     Route: 048
  3. ZOLPIDEM [Concomitant]
     Dosage: 10 MG
     Route: 048
  4. FAMOTIDINE [Concomitant]
     Dosage: 20 MG
     Route: 048
  5. SODIUM CHLORIDE [Concomitant]
     Dosage: 3 G
     Route: 048

REACTIONS (2)
  - CEREBRAL INFARCTION [None]
  - WRONG TECHNIQUE IN DRUG USAGE PROCESS [None]
